FAERS Safety Report 15986159 (Version 1)
Quarter: 2019Q1

REPORT INFORMATION
  Report Type: Spontaneous
  Country: US (occurrence: US)
  Receive Date: 20190220
  Receipt Date: 20190220
  Transmission Date: 20190418
  Serious: Yes (Hospitalization, Other)
  Sender: FDA-Public Use
  Company Number: US-ASTELLAS-2019US004870

PATIENT
  Sex: Female

DRUGS (1)
  1. MYRBETRIQ [Suspect]
     Active Substance: MIRABEGRON
     Indication: PRODUCT USED FOR UNKNOWN INDICATION
     Dosage: UNK UNK, UNKNOWN FREQ.
     Route: 065

REACTIONS (10)
  - Urinary retention [Unknown]
  - Urine output decreased [Unknown]
  - Coma [Unknown]
  - Wrong product administered [Unknown]
  - Migraine [Unknown]
  - Urine abnormality [Unknown]
  - Immunodeficiency [Unknown]
  - Headache [Unknown]
  - Cystitis [Unknown]
  - Ketoacidosis [Unknown]
